FAERS Safety Report 7460192-7 (Version None)
Quarter: 2011Q2

REPORT INFORMATION
  Report Type: 
  Country: None (occurrence: None)
  Receive Date: 20110505
  Receipt Date: 20110427
  Transmission Date: 20111010
  Serious: Yes (Hospitalization)
  Sender: FDA-Public Use
  Company Number: US-ROCHE-773198

PATIENT
  Sex: Female
  Weight: 101.6 kg

DRUGS (7)
  1. CARBOPLATIN [Suspect]
     Route: 042
     Dates: start: 20100819, end: 20101202
  2. TRASTUZUMAB [Suspect]
     Dosage: CYCLE 4, LAST DOSE PRIOR TO SAE: 04 APRIL 2011
     Route: 042
     Dates: start: 20100819
  3. HYDROCHLOROTHIAZIDE [Concomitant]
     Indication: HYPERTENSION
  4. NEXIUM [Concomitant]
  5. COZAAR [Concomitant]
     Indication: HYPERTENSION
  6. IXEMPRA KIT [Suspect]
     Dosage: FORM :INFUSION
     Route: 042
     Dates: start: 20100819, end: 20101202
  7. ELAVIL [Concomitant]
     Indication: ANTIDEPRESSANT THERAPY

REACTIONS (1)
  - DUODENAL ULCER [None]
